FAERS Safety Report 9880696 (Version 1)
Quarter: 2014Q1

REPORT INFORMATION
  Report Type: Spontaneous
  Country: NL (occurrence: None)
  Receive Date: 20140205
  Receipt Date: 20140205
  Transmission Date: 20141002
  Serious: Yes (Hospitalization)
  Sender: FDA-Public Use
  Company Number: IMP_07454_2014

PATIENT
  Age: 57 Year
  Sex: Female

DRUGS (6)
  1. VALPROIC ACID [Suspect]
     Indication: EPILEPSY
  2. LAMOTRIGINE [Concomitant]
  3. ATENOLOL W/ CHLORALIDONE [Concomitant]
  4. OXYBUTYNIN [Concomitant]
  5. BISACODYL [Concomitant]
  6. POTASSIUM CHLORIDE [Concomitant]

REACTIONS (4)
  - Confusional state [None]
  - Memory impairment [None]
  - Somnolence [None]
  - Hyponatraemia [None]
